FAERS Safety Report 22928051 (Version 10)
Quarter: 2024Q1

REPORT INFORMATION
  Report Type: Spontaneous
  Country: US (occurrence: US)
  Receive Date: 20230911
  Receipt Date: 20240101
  Transmission Date: 20240409
  Serious: Yes (Hospitalization, Other)
  Sender: FDA-Public Use
  Company Number: US-BIOVITRUM-2023-US-014619

PATIENT
  Age: 69 Year
  Sex: Female

DRUGS (3)
  1. KINERET [Suspect]
     Active Substance: ANAKINRA
     Indication: Autoimmune thyroiditis
     Dosage: 100 MG DAILY
     Route: 058
     Dates: start: 20230901
  2. KINERET [Suspect]
     Active Substance: ANAKINRA
     Dosage: 100 MG DAILY
     Route: 058
     Dates: start: 20230901
  3. RITUXAN [Suspect]
     Active Substance: RITUXIMAB
     Indication: Product used for unknown indication

REACTIONS (26)
  - Condition aggravated [Unknown]
  - Autoimmune thyroiditis [Unknown]
  - Renal failure [Unknown]
  - Haematemesis [Unknown]
  - Intentional product misuse [Not Recovered/Not Resolved]
  - Headache [Unknown]
  - Nervousness [Unknown]
  - Feeling jittery [Unknown]
  - Injection site erythema [Unknown]
  - Hypertension [Unknown]
  - Injection site pain [Unknown]
  - Product dose omission issue [Unknown]
  - Injection site discolouration [Unknown]
  - Feeling abnormal [Unknown]
  - Injection site urticaria [Unknown]
  - Injection site pruritus [Unknown]
  - Renal disorder [Unknown]
  - Gastrointestinal disorder [Unknown]
  - Abdominal pain [Unknown]
  - Nausea [Unknown]
  - Pancreatic enzymes increased [Unknown]
  - Hypotension [Unknown]
  - Gastritis [Unknown]
  - Swelling face [Unknown]
  - COVID-19 [Recovering/Resolving]
  - Anaphylactic reaction [Unknown]

NARRATIVE: CASE EVENT DATE: 20230901
